FAERS Safety Report 5382490-3 (Version None)
Quarter: 2007Q3

REPORT INFORMATION
  Report Type: 
  Country: None (occurrence: None)
  Receive Date: 20070710
  Receipt Date: 20070628
  Transmission Date: 20080115
  Serious: Yes (Other)
  Sender: FDA-Public Use
  Company Number: CA-ELI_LILLY_AND_COMPANY-CA200707001090

PATIENT
  Sex: Female

DRUGS (2)
  1. ZYPREXA [Suspect]
  2. PHENYLEPHRINE W/TROPICAMIDE [Concomitant]
     Dosage: UNK, UNK
     Route: 047
     Dates: start: 20070619, end: 20070619

REACTIONS (4)
  - BLINDNESS TRANSIENT [None]
  - EYE MOVEMENT DISORDER [None]
  - MYDRIASIS [None]
  - VISUAL DISTURBANCE [None]
